FAERS Safety Report 6135083-4 (Version None)
Quarter: 2009Q1

REPORT INFORMATION
  Report Type: 
  Country: None (occurrence: None)
  Receive Date: 20090327
  Receipt Date: 20090316
  Transmission Date: 20090719
  Serious: Yes (Life-Threatening, Hospitalization)
  Sender: FDA-Public Use
  Company Number: AU-WYE-H08648409

PATIENT
  Sex: Female

DRUGS (1)
  1. SOMAC [Suspect]
     Indication: GASTRIC DISORDER
     Dosage: 20 MG AS REQUIRED
     Route: 048
     Dates: start: 20081023, end: 20081024

REACTIONS (7)
  - ANAPHYLACTIC REACTION [None]
  - BODY TEMPERATURE FLUCTUATION [None]
  - BURNING SENSATION [None]
  - HEART RATE INCREASED [None]
  - RASH MACULAR [None]
  - SWOLLEN TONGUE [None]
  - VISUAL IMPAIRMENT [None]
